FAERS Safety Report 8555154 (Version 3)
Quarter: 2015Q1

REPORT INFORMATION
  Report Type: Report from Study
  Country: US (occurrence: US)
  Receive Date: 20120510
  Receipt Date: 20150205
  Transmission Date: 20150721
  Serious: Yes (Other)
  Sender: FDA-Public Use
  Company Number: PHEH2012US009750

PATIENT
  Age: 57 Year
  Sex: Female
  Weight: 65.76 kg

DRUGS (1)
  1. GILENYA [Suspect]
     Active Substance: FINGOLIMOD HYDROCHLORIDE
     Indication: MULTIPLE SCLEROSIS
     Dosage: 0.5 MG, DAILY
     Route: 048

REACTIONS (7)
  - Euphoric mood [Recovered/Resolved]
  - White blood cell count abnormal [Unknown]
  - Lymphocyte count abnormal [Not Recovered/Not Resolved]
  - Nausea [Recovered/Resolved]
  - Central nervous system lesion [Unknown]
  - Multiple sclerosis relapse [Unknown]
  - Dizziness [Recovered/Resolved]

NARRATIVE: CASE EVENT DATE: 201205
